FAERS Safety Report 19493546 (Version 1)
Quarter: 2021Q3

REPORT INFORMATION
  Report Type: Spontaneous
  Country: CA (occurrence: CA)
  Receive Date: 20210705
  Receipt Date: 20210705
  Transmission Date: 20211014
  Serious: Yes (Other)
  Sender: FDA-Public Use
  Company Number: CA-LUPIN PHARMACEUTICALS INC.-2021-10735

PATIENT
  Age: 62 Year
  Sex: Female

DRUGS (3)
  1. CELECOXIB. [Suspect]
     Active Substance: CELECOXIB
     Indication: PRODUCT USED FOR UNKNOWN INDICATION
     Dosage: UNK
     Route: 065
     Dates: end: 201909
  2. PREDNISONE. [Concomitant]
     Active Substance: PREDNISONE
     Indication: SQUAMOUS CELL CARCINOMA
     Dosage: 10 MILLIGRAM, QD
     Route: 065
  3. DURVALUMAB. [Suspect]
     Active Substance: DURVALUMAB
     Indication: SQUAMOUS CELL CARCINOMA
     Dosage: 1500 MILLIGRAM, 1 MONTH
     Route: 065
     Dates: start: 201705, end: 201909

REACTIONS (2)
  - Pemphigoid [Unknown]
  - Skin toxicity [Unknown]

NARRATIVE: CASE EVENT DATE: 201909
